FAERS Safety Report 19443211 (Version 1)
Quarter: 2021Q2

REPORT INFORMATION
  Report Type: Spontaneous
  Country: US (occurrence: US)
  Receive Date: 20210621
  Receipt Date: 20210621
  Transmission Date: 20210717
  Serious: Yes (Other)
  Sender: FDA-Public Use
  Company Number: US-CMP PHARMA-2021CMP00010

PATIENT
  Age: 69 Year
  Sex: Female
  Weight: 62.59 kg

DRUGS (4)
  1. LINZESS [Concomitant]
     Active Substance: LINACLOTIDE
  2. SPS [Suspect]
     Active Substance: SODIUM POLYSTYRENE SULFONATE
     Indication: BLOOD POTASSIUM INCREASED
     Dosage: FULL BOTTLE, ONCE
     Route: 048
     Dates: start: 20210605, end: 20210605
  3. CLARITIN [Concomitant]
     Active Substance: LORATADINE
  4. METOPROLOL. [Concomitant]
     Active Substance: METOPROLOL

REACTIONS (8)
  - Bradycardia [Unknown]
  - Hyponatraemia [Unknown]
  - Gluten sensitivity [Unknown]
  - Hypersensitivity [Unknown]
  - Abdominal pain [Unknown]
  - Reaction to excipient [Unknown]
  - Illness [Unknown]
  - Abdominal distension [Unknown]

NARRATIVE: CASE EVENT DATE: 20210605
